FAERS Safety Report 24862845 (Version 4)
Quarter: 2025Q3

REPORT INFORMATION
  Report Type: Spontaneous
  Country: US (occurrence: US)
  Receive Date: 20250120
  Receipt Date: 20250912
  Transmission Date: 20251021
  Serious: No
  Sender: BRISTOL-MYERS SQUIBB COMPANY
  Company Number: US-BRISTOL-MYERS SQUIBB COMPANY-2025-006671

PATIENT
  Age: 42 Year
  Sex: Female

DRUGS (3)
  1. ORENCIA [Suspect]
     Active Substance: ABATACEPT
     Indication: Rheumatoid arthritis
     Dosage: DOSE: 50MG/0.4ML, STRENGTH: 50MG/0.4ML
     Dates: start: 202410
  2. ORENCIA [Suspect]
     Active Substance: ABATACEPT
     Dosage: DOSE: 50MG/0.4ML, STRENGTH: 50MG/0.4ML
     Dates: start: 202411
  3. ORENCIA [Suspect]
     Active Substance: ABATACEPT
     Dosage: STRENGTH: 50MG/0.4ML
     Dates: start: 202410

REACTIONS (1)
  - Rheumatoid arthritis [Unknown]

NARRATIVE: CASE EVENT DATE: 20241201
